FAERS Safety Report 21400699 (Version 10)
Quarter: 2023Q4

REPORT INFORMATION
  Report Type: Report from Study
  Country: JP (occurrence: JP)
  Receive Date: 20221003
  Receipt Date: 20231208
  Transmission Date: 20240110
  Serious: Yes (Other)
  Sender: FDA-Public Use
  Company Number: JP-ASTELLAS-2022JP009049

PATIENT
  Sex: Male
  Weight: 52.4 kg

DRUGS (6)
  1. ENFORTUMAB VEDOTIN [Suspect]
     Active Substance: ENFORTUMAB VEDOTIN
     Indication: Metastatic carcinoma of the bladder
     Dosage: 1.25 MG/KG, 3 CONSECUTIVE DOSES, THEN SKIPPED ONE DOSE
     Route: 041
     Dates: start: 20220118, end: 20220301
  2. ENFORTUMAB VEDOTIN [Suspect]
     Active Substance: ENFORTUMAB VEDOTIN
     Dosage: 1.0 MG/KG, 3 CONSECUTIVE DOSES, THEN SKIPPED ONE DOSE
     Route: 041
     Dates: start: 20220315, end: 20220329
  3. MIRCERA [Concomitant]
     Active Substance: METHOXY POLYETHYLENE GLYCOL-EPOETIN BETA
     Indication: Anaemia
     Dosage: 100 UG, MONTHLY
     Route: 058
     Dates: start: 20220112, end: 20220209
  4. VADADUSTAT [Concomitant]
     Active Substance: VADADUSTAT
     Indication: Anaemia
     Route: 048
     Dates: start: 20220302
  5. CANDESARTAN [Concomitant]
     Active Substance: CANDESARTAN
     Indication: Hypertension
     Route: 048
  6. TRICHLORMETHIAZIDE [Concomitant]
     Active Substance: TRICHLORMETHIAZIDE
     Indication: Hypertension
     Route: 048

REACTIONS (8)
  - Face oedema [Recovered/Resolved]
  - Drug eruption [Recovering/Resolving]
  - Rash [Unknown]
  - Taste disorder [Not Recovered/Not Resolved]
  - Pruritus [Recovered/Resolved]
  - Drug eruption [Recovered/Resolved]
  - Rash maculo-papular [Not Recovered/Not Resolved]
  - Anaemia [Recovering/Resolving]

NARRATIVE: CASE EVENT DATE: 20220101
